FAERS Safety Report 21619349 (Version 1)
Quarter: 2022Q4

REPORT INFORMATION
  Report Type: Spontaneous
  Country: US (occurrence: US)
  Receive Date: 20221120
  Receipt Date: 20221120
  Transmission Date: 20230113
  Serious: Yes (Other)
  Sender: FDA-Public Use
  Company Number: US-BRISTOL-MYERS SQUIBB COMPANY-2022-137995

PATIENT
  Age: 62 Year
  Sex: Female
  Weight: 43.09 kg

DRUGS (6)
  1. SUSTIVA [Suspect]
     Active Substance: EFAVIRENZ
     Indication: HIV test positive
     Route: 048
     Dates: start: 1999, end: 20220930
  2. SUSTIVA [Suspect]
     Active Substance: EFAVIRENZ
     Route: 048
  3. DESCOVY [Suspect]
     Active Substance: EMTRICITABINE\TENOFOVIR ALAFENAMIDE FUMARATE
     Indication: Product used for unknown indication
     Route: 065
  4. TRUVADA [Suspect]
     Active Substance: EMTRICITABINE\TENOFOVIR DISOPROXIL FUMARATE
     Indication: Product used for unknown indication
     Route: 065
  5. ZERIT [Suspect]
     Active Substance: STAVUDINE
     Indication: Product used for unknown indication
     Route: 065
  6. EPIVIR [Suspect]
     Active Substance: LAMIVUDINE
     Indication: Product used for unknown indication
     Route: 065

REACTIONS (10)
  - Bone disorder [Unknown]
  - Renal disorder [Unknown]
  - Spinal fracture [Unknown]
  - Bipolar disorder [Unknown]
  - Post-traumatic stress disorder [Unknown]
  - Arthropathy [Unknown]
  - Arthritis [Unknown]
  - Amnesia [Unknown]
  - Weight decreased [Unknown]
  - Limb discomfort [Unknown]
